FAERS Safety Report 13073370 (Version 3)
Quarter: 2017Q1

REPORT INFORMATION
  Report Type: Spontaneous
  Country: US (occurrence: US)
  Receive Date: 20161229
  Receipt Date: 20170127
  Transmission Date: 20170428
  Serious: Yes (Death, Hospitalization, Other)
  Sender: FDA-Public Use
  Company Number: US-DSJP-DSU-2016-143499

PATIENT

DRUGS (3)
  1. PEPTO-BISMOL [Concomitant]
     Active Substance: BISMUTH SUBSALICYLATE
     Indication: PRODUCT USED FOR UNKNOWN INDICATION
     Dosage: UNK
  2. BENICAR HCT [Suspect]
     Active Substance: HYDROCHLOROTHIAZIDE\OLMESARTAN MEDOXOMIL
     Indication: HYPERTENSION
     Dosage: 20/12.5 MG, QD
     Route: 048
     Dates: start: 201403, end: 20150429
  3. IMODIUM [Concomitant]
     Active Substance: LOPERAMIDE HYDROCHLORIDE
     Indication: PRODUCT USED FOR UNKNOWN INDICATION
     Dosage: UNK

REACTIONS (9)
  - Diverticulum [Unknown]
  - Pneumonia [Unknown]
  - Acute kidney injury [Not Recovered/Not Resolved]
  - Septic shock [Fatal]
  - Colitis ischaemic [Fatal]
  - Gastritis [Unknown]
  - Haematemesis [Unknown]
  - Respiratory failure [Fatal]
  - Cholelithiasis [Unknown]

NARRATIVE: CASE EVENT DATE: 201403
